FAERS Safety Report 23521903 (Version 2)
Quarter: 2024Q2

REPORT INFORMATION
  Report Type: Spontaneous
  Country: IT (occurrence: IT)
  Receive Date: 20240214
  Receipt Date: 20240528
  Transmission Date: 20240716
  Serious: Yes (Death, Hospitalization, Other)
  Sender: FDA-Public Use
  Company Number: None

PATIENT
  Age: 16 Year
  Sex: Male

DRUGS (13)
  1. AZACITIDINE [Suspect]
     Active Substance: AZACITIDINE
     Indication: Acute myeloid leukaemia
     Dosage: 125 MG/DAY FOR 7 DAYS
     Route: 048
  2. AZACITIDINE [Suspect]
     Active Substance: AZACITIDINE
     Indication: Acute myeloid leukaemia recurrent
     Dosage: FOR 7 DAYS
     Route: 048
  3. AZACITIDINE [Suspect]
     Active Substance: AZACITIDINE
     Indication: Off label use
     Dosage: FOR 7 DAYS
     Route: 048
  4. AZACITIDINE [Suspect]
     Active Substance: AZACITIDINE
     Indication: Myelodysplastic syndrome
     Route: 048
  5. AZACITIDINE [Suspect]
     Active Substance: AZACITIDINE
     Indication: Shwachman-Diamond syndrome
  6. VENETOCLAX [Suspect]
     Active Substance: VENETOCLAX
     Indication: Acute myeloid leukaemia
     Dosage: FOR 28 DAYS
  7. VENETOCLAX [Suspect]
     Active Substance: VENETOCLAX
     Indication: Acute myeloid leukaemia recurrent
     Dosage: FOR 28 DAYS
  8. VENETOCLAX [Suspect]
     Active Substance: VENETOCLAX
     Indication: Shwachman-Diamond syndrome
     Dosage: INCREASING BY 100 MG/DAY UP TO 800 MG/DAY FOR 28 DAYS GRADUALLY INCREASED BY 100 MG/DAY UP TO A DOSE
  9. VENETOCLAX [Suspect]
     Active Substance: VENETOCLAX
     Indication: Myelodysplastic syndrome
  10. THIOGUANINE [Suspect]
     Active Substance: THIOGUANINE
     Indication: Acute myeloid leukaemia
     Route: 048
  11. FLUDARABINE [Suspect]
     Active Substance: FLUDARABINE PHOSPHATE
     Indication: Acute myeloid leukaemia
     Route: 048
  12. CYTARABINE [Suspect]
     Active Substance: CYTARABINE
     Indication: Acute myeloid leukaemia
     Route: 048
  13. CYTARABINE [Suspect]
     Active Substance: CYTARABINE
     Route: 042

REACTIONS (16)
  - Multiple organ dysfunction syndrome [Fatal]
  - Escherichia sepsis [Fatal]
  - Staphylococcal sepsis [Fatal]
  - Fluid retention [Recovered/Resolved]
  - Stenotrophomonas infection [Unknown]
  - Stomatitis [Unknown]
  - Escherichia sepsis [Unknown]
  - Staphylococcal sepsis [Unknown]
  - Staphylococcal sepsis [Unknown]
  - Thrombocytopenia [Unknown]
  - Urticaria [Recovered/Resolved]
  - Oedema peripheral [Unknown]
  - Diarrhoea [Unknown]
  - Infection [Recovered/Resolved]
  - Off label use [Recovered/Resolved]
  - Toxicity to various agents [Unknown]
